FAERS Safety Report 9182080 (Version 1)
Quarter: 2012Q4

REPORT INFORMATION
  Report Type: 
  Country: BR (occurrence: BR)
  Receive Date: 20121030
  Receipt Date: 20121030
  Transmission Date: 20130627
  Serious: Yes (Other)
  Sender: FDA-Public Use
  Company Number: PHHY2012BR097236

PATIENT
  Sex: Female

DRUGS (5)
  1. DIOVAN [Suspect]
     Indication: HYPERTENSION
     Dosage: 1 DF, 1 time a day
     Route: 048
  2. NITRENDIPINO [Concomitant]
     Indication: HYPERTENSION
     Dosage: 2 DF, (one in the morning and the other in the afternoon) daily
     Route: 048
  3. ATENSINA [Concomitant]
     Indication: HYPERTENSION
     Dosage: 2 DF, daily
     Route: 048
  4. RIVOTRIL [Concomitant]
     Indication: SLEEP DISORDER
     Dosage: 1 DF, a day
     Route: 048
  5. SINVASTATINA [Concomitant]
     Indication: BLOOD CHOLESTEROL INCREASED
     Dosage: 1 DF, at night
     Route: 048

REACTIONS (2)
  - Diabetes mellitus [Recovered/Resolved]
  - Blood cholesterol increased [Recovered/Resolved]
